FAERS Safety Report 7008538-8 (Version None)
Quarter: 2010Q3

REPORT INFORMATION
  Report Type: 
  Country: None (occurrence: None)
  Receive Date: 20100922
  Receipt Date: 20100920
  Transmission Date: 20110219
  Serious: Yes (Other)
  Sender: FDA-Public Use
  Company Number: US-PFIZER INC-2010031613

PATIENT
  Sex: Female

DRUGS (8)
  1. PROVERA [Suspect]
     Indication: HORMONE REPLACEMENT THERAPY
     Dosage: 5 MG, 1X/DAY, DAYS 14-25
     Dates: start: 19950201, end: 19950901
  2. PROVERA [Suspect]
     Indication: MENOPAUSAL SYMPTOMS
     Dosage: 2.5 MG, 1X/DAY
     Dates: start: 19960701, end: 19980801
  3. PREMPRO [Suspect]
     Indication: HORMONE REPLACEMENT THERAPY
     Dosage: UNK
     Dates: start: 19950901, end: 19960701
  4. PREMPRO [Suspect]
     Indication: MENOPAUSE
     Dosage: UNK
     Dates: start: 19980801, end: 20000101
  5. PREMPRO [Suspect]
     Indication: HOT FLUSH
  6. PREMPRO [Suspect]
     Indication: MENOPAUSAL SYMPTOMS
  7. ORTHO-EST [Suspect]
     Indication: HORMONE REPLACEMENT THERAPY
     Dosage: 0.625 MG, 1X/DAY
  8. ESTRACE [Suspect]
     Indication: HORMONE REPLACEMENT THERAPY
     Dosage: UNK

REACTIONS (1)
  - BREAST CANCER [None]
